FAERS Safety Report 5480762-5 (Version None)
Quarter: 2007Q4

REPORT INFORMATION
  Report Type: 
  Country: None (occurrence: None)
  Receive Date: 20071009
  Receipt Date: 20070928
  Transmission Date: 20080405
  Serious: Yes (Other)
  Sender: FDA-Public Use
  Company Number: US-SHR-US-2007-006397

PATIENT
  Age: 57 Year
  Sex: Female
  Weight: 67.6 kg

DRUGS (40)
  1. MAGNEVIST [Suspect]
     Dosage: UNK, 1 DOSE
     Route: 042
     Dates: start: 20020125, end: 20020125
  2. MAGNEVIST [Suspect]
     Dosage: UNK, 1 DOSE
     Route: 042
     Dates: start: 20020612, end: 20020612
  3. PREDNISONE [Concomitant]
  4. COUMADIN [Concomitant]
  5. RENAGEL [Concomitant]
     Dosage: 2400 MG, 3X/DAY
  6. RENAGEL [Concomitant]
     Dosage: 1600 MG, 3X/DAY
     Route: 048
  7. EPOGEN [Concomitant]
     Dosage: 800 UNITS 3X/WEEK
  8. EPOGEN [Concomitant]
     Dosage: 10,000 UNITS BIW
     Route: 058
  9. EPOGEN [Concomitant]
     Dosage: 8000 UNITS
     Route: 058
  10. EPOGEN [Concomitant]
     Dosage: 4000 UNITS
     Route: 058
     Dates: start: 20021101
  11. EPOGEN [Concomitant]
     Dosage: 2000 UNITS
     Route: 058
  12. EPOGEN [Concomitant]
     Dosage: 8000 UNITS
     Route: 058
  13. LEVOXYL [Concomitant]
  14. MINOCYCLINE HCL [Concomitant]
  15. NEPHROCAPS [Concomitant]
  16. CLOTRIMAZOLE [Concomitant]
  17. NEXIUM [Concomitant]
  18. MAALOX                                  /USA/ [Concomitant]
  19. IRON [Concomitant]
  20. PREDNISONE [Concomitant]
  21. LISINOPRIL [Concomitant]
     Dates: start: 20020122
  22. POTASSIUM CHLORIDE [Concomitant]
  23. NIFEREX [Concomitant]
  24. CELLCEPT [Concomitant]
     Dates: start: 20011001
  25. VALGANCICLOVIR HCL [Concomitant]
  26. PROGRAF [Concomitant]
     Dates: start: 20011001
  27. TORSEMIDE [Concomitant]
  28. ZAROXOLYN [Concomitant]
  29. TYLENOL W/ CODEINE NO. 3 [Concomitant]
  30. L-CARNITINE [Concomitant]
     Dosage: AT DIALYSIS
  31. FOLIC ACID [Concomitant]
  32. VITAMIN B6 [Concomitant]
  33. VITAMIN B-12 [Concomitant]
  34. FOSAMAX [Concomitant]
  35. DARVOCET [Concomitant]
     Dates: start: 20030101
  36. VIOXX [Concomitant]
     Dates: start: 20030101
  37. CALCIUM CARBONATE [Concomitant]
  38. CALCIUM ACETATE [Concomitant]
  39. MIDODRINE [Concomitant]
     Dates: start: 20040601
  40. ULTRAVIST (PHARMACY BULK) [Concomitant]
     Dosage: 90 ML, 1 DOSE
     Dates: start: 20040618, end: 20040618

REACTIONS (1)
  - NEPHROGENIC SYSTEMIC FIBROSIS [None]
